FAERS Safety Report 4700003-3 (Version None)
Quarter: 2005Q2

REPORT INFORMATION
  Report Type: 
  Country: None (occurrence: None)
  Receive Date: 20050623
  Receipt Date: 20050609
  Transmission Date: 20051028
  Serious: Yes (Hospitalization)
  Sender: FDA-Public Use
  Company Number: 200313226BCC

PATIENT
  Age: 76 Year
  Sex: Male

DRUGS (10)
  1. ALEVE [Suspect]
     Indication: DEMENTIA ALZHEIMER'S TYPE
     Dosage: BID, ORAL
     Route: 048
     Dates: start: 20010409, end: 20020423
  2. CIPROFLOXACIN [Concomitant]
     Indication: PROPHYLAXIS
  3. FLUCONAZOLE [Concomitant]
  4. FILGRASTIM [Concomitant]
  5. ATORVASTATIN CALCIUM [Concomitant]
  6. ATENOLOL [Concomitant]
  7. ASPIRIN [Concomitant]
  8. PROCHLORPERAZINE [Concomitant]
  9. PRED FORTE [Concomitant]
  10. ALLOPURINOL [Concomitant]

REACTIONS (7)
  - CEREBRAL INFARCTION [None]
  - CEREBROVASCULAR ACCIDENT [None]
  - LYMPHOMA [None]
  - NEOPLASM RECURRENCE [None]
  - NEUTROPHIL COUNT DECREASED [None]
  - PLATELET COUNT DECREASED [None]
  - WHITE BLOOD CELL COUNT DECREASED [None]
